FAERS Safety Report 23258707 (Version 1)
Quarter: 2023Q4

REPORT INFORMATION
  Report Type: Spontaneous
  Country: US (occurrence: None)
  Receive Date: 20231202
  Receipt Date: 20231202
  Transmission Date: 20240110
  Serious: Yes (Other)
  Sender: FDA-Public Use
  Company Number: None

PATIENT
  Age: 57 Year
  Sex: Female
  Weight: 71.1 kg

DRUGS (19)
  1. NIFEDIPINE [Suspect]
     Active Substance: NIFEDIPINE
     Indication: Hypertension
     Dosage: OTHER QUANTITY : 1 CAPSULE(S);?
     Dates: start: 20230727
  2. DEVICE [Concomitant]
     Active Substance: DEVICE
  3. PREDNISONE [Concomitant]
     Active Substance: PREDNISONE
  4. Vitamin D3 1 [Concomitant]
  5. MYCOPHENOLIC ACID [Concomitant]
     Active Substance: MYCOPHENOLIC ACID
  6. TACROLIMUS [Concomitant]
     Active Substance: TACROLIMUS
  7. ROSUVASTATIN [Concomitant]
     Active Substance: ROSUVASTATIN
  8. PROGRAF [Concomitant]
     Active Substance: TACROLIMUS
  9. Low dosage aspirin [Concomitant]
  10. Furosomide [Concomitant]
  11. CLONIDINE [Concomitant]
     Active Substance: CLONIDINE
  12. HYDRALAZINE [Concomitant]
     Active Substance: HYDRALAZINE HYDROCHLORIDE
  13. PANTOPRAZOLE [Suspect]
     Active Substance: PANTOPRAZOLE
  14. LOSARTAN [Concomitant]
     Active Substance: LOSARTAN
  15. Cardivelol [Concomitant]
  16. AMOXICILLIN [Concomitant]
     Active Substance: AMOXICILLIN
  17. CRANBERRY [Concomitant]
     Active Substance: CRANBERRY
  18. VITAMIN D [Concomitant]
     Active Substance: VITAMIN D NOS
  19. beet capsules [Concomitant]

REACTIONS (1)
  - Gait inability [None]

NARRATIVE: CASE EVENT DATE: 20230727
